FAERS Safety Report 6972697-3 (Version None)
Quarter: 2010Q3

REPORT INFORMATION
  Report Type: 
  Country: None (occurrence: None)
  Receive Date: 20100909
  Receipt Date: 20090810
  Transmission Date: 20110219
  Serious: No
  Sender: FDA-Public Use
  Company Number: US-KINGPHARMUSA00001-K200900961

PATIENT
  Sex: Female

DRUGS (1)
  1. CYTOMEL [Suspect]
     Dosage: UNK
     Dates: start: 20090101

REACTIONS (4)
  - BLOOD CORTISOL DECREASED [None]
  - DIARRHOEA [None]
  - PALPITATIONS [None]
  - REVERSE TRI-IODOTHYRONINE INCREASED [None]
